FAERS Safety Report 7447157-6 (Version None)
Quarter: 2011Q2

REPORT INFORMATION
  Report Type: 
  Country: None (occurrence: None)
  Receive Date: 20110429
  Receipt Date: 20101208
  Transmission Date: 20111010
  Serious: No
  Sender: FDA-Public Use
  Company Number: US-ASTRAZENECA-2010SE58387

PATIENT
  Age: 80 Year
  Sex: Female
  Weight: 68.5 kg

DRUGS (2)
  1. FOSAMAX [Concomitant]
     Indication: OSTEOPOROSIS
  2. NEXIUM [Suspect]
     Indication: GASTROOESOPHAGEAL REFLUX DISEASE
     Route: 048
     Dates: start: 19980101, end: 20100801

REACTIONS (4)
  - GASTROOESOPHAGEAL REFLUX DISEASE [None]
  - UPPER LIMB FRACTURE [None]
  - OSTEOPOROSIS [None]
  - DRUG DOSE OMISSION [None]
